FAERS Safety Report 4477131-3 (Version None)
Quarter: 2004Q4

REPORT INFORMATION
  Report Type: 
  Country: None (occurrence: None)
  Receive Date: 20041018
  Receipt Date: 20041005
  Transmission Date: 20050328
  Serious: Yes (Life-Threatening, Disabling)
  Sender: FDA-Public Use
  Company Number: US-MERCK-0410USA00706

PATIENT
  Age: 55 Year
  Sex: Female

DRUGS (1)
  1. FOSAMAX [Suspect]
     Indication: OSTEOPOROSIS PROPHYLAXIS
     Route: 048
     Dates: start: 20040912, end: 20040101

REACTIONS (5)
  - CONFUSIONAL STATE [None]
  - CYANOSIS [None]
  - ERYTHEMA MULTIFORME [None]
  - FATIGUE [None]
  - HYPOVENTILATION [None]
